FAERS Safety Report 6660642-X (Version None)
Quarter: 2010Q1

REPORT INFORMATION
  Report Type: 
  Country: None (occurrence: None)
  Receive Date: 20100331
  Receipt Date: 20100329
  Transmission Date: 20100710
  Serious: Yes (Death)
  Sender: FDA-Public Use
  Company Number: CA-CELGENEUS-028-21880-10021478

PATIENT
  Sex: Male

DRUGS (2)
  1. REVLIMID [Suspect]
     Route: 048
     Dates: start: 20091231
  2. REVLIMID [Suspect]
     Route: 048
     Dates: start: 20100101, end: 20100121

REACTIONS (2)
  - MULTIPLE MYELOMA [None]
  - PNEUMONIA [None]
